FAERS Safety Report 13655316 (Version 1)
Quarter: 2017Q2

REPORT INFORMATION
  Report Type: Spontaneous
  Country: DE (occurrence: DE)
  Receive Date: 20170615
  Receipt Date: 20170615
  Transmission Date: 20170830
  Serious: Yes (Other)
  Sender: FDA-Public Use
  Company Number: DE-ACCORD-052244

PATIENT
  Age: 80 Year
  Sex: Female
  Weight: 64 kg

DRUGS (2)
  1. CARBOPLATIN ACCORD [Suspect]
     Active Substance: CARBOPLATIN
     Indication: ENDOMETRIAL CANCER
     Dosage: STRENGTH: 150 MG
     Route: 042
  2. PACLITAXEL/PACLITAXEL LIPOSOME [Concomitant]

REACTIONS (6)
  - Hypersensitivity [Unknown]
  - Chills [Unknown]
  - Off label use [Unknown]
  - Rash [Unknown]
  - Paraesthesia [Unknown]
  - Pyrexia [Unknown]

NARRATIVE: CASE EVENT DATE: 20170503
